FAERS Safety Report 21494709 (Version 2)
Quarter: 2022Q4

REPORT INFORMATION
  Report Type: Spontaneous
  Country: PY (occurrence: None)
  Receive Date: 20221021
  Receipt Date: 20221025
  Transmission Date: 20230113
  Serious: Yes (Other)
  Sender: FDA-Public Use
  Company Number: PY-ROCHE-3203621

PATIENT
  Sex: Male
  Weight: 65 kg

DRUGS (1)
  1. ALECENSA [Suspect]
     Active Substance: ALECTINIB HYDROCHLORIDE
     Indication: Lung adenocarcinoma
     Dosage: INDICATION ANK+ LUNG ADENOCARCINOMA
     Route: 048

REACTIONS (1)
  - Liver disorder [Recovered/Resolved]

NARRATIVE: CASE EVENT DATE: 20220930
